FAERS Safety Report 7613195-3 (Version None)
Quarter: 2011Q3

REPORT INFORMATION
  Report Type: 
  Country: None (occurrence: None)
  Receive Date: 20110708
  Receipt Date: 20110624
  Transmission Date: 20111222
  Serious: Yes (Other)
  Sender: FDA-Public Use
  Company Number: US-2011-10452

PATIENT
  Sex: Female

DRUGS (3)
  1. FLUDARA [Concomitant]
  2. DEPAKENE [Concomitant]
  3. BUSULFAN [Suspect]
     Indication: STEM CELL TRANSPLANT
     Dosage: 0.8 MG/KG, QID, INTRAVENOUS
     Route: 042
     Dates: start: 20110619, end: 20110622

REACTIONS (3)
  - URINARY INCONTINENCE [None]
  - STATUS EPILEPTICUS [None]
  - ALTERED STATE OF CONSCIOUSNESS [None]
